FAERS Safety Report 20860059 (Version 1)
Quarter: 2022Q2

REPORT INFORMATION
  Report Type: Spontaneous
  Country: CA (occurrence: CA)
  Receive Date: 20220523
  Receipt Date: 20220523
  Transmission Date: 20220721
  Serious: Yes (Life-Threatening, Hospitalization, Disabling)
  Sender: FDA-Public Use
  Company Number: CA-TEVA-2022-CA-2038532

PATIENT
  Age: 63 Year
  Sex: Female

DRUGS (21)
  1. AMIODARONE [Suspect]
     Active Substance: AMIODARONE
     Indication: Arrhythmia
     Dosage: 200 MILLIGRAM DAILY;
     Route: 048
  2. ACETAMINOPHEN [Concomitant]
     Active Substance: ACETAMINOPHEN
  3. ATORVASTATIN [Concomitant]
     Active Substance: ATORVASTATIN
     Route: 065
  4. BISOPROLOL [Concomitant]
     Active Substance: BISOPROLOL
     Route: 065
  5. BUPROPION [Concomitant]
     Active Substance: BUPROPION
     Route: 065
  6. CLOPIDOGREL [Concomitant]
     Active Substance: CLOPIDOGREL BISULFATE
  7. DEXILANT [Concomitant]
     Active Substance: DEXLANSOPRAZOLE
  8. ENTRESTO [Concomitant]
     Active Substance: SACUBITRIL\VALSARTAN
  9. ESTRADIOL [Concomitant]
     Active Substance: ESTRADIOL
  10. FERROUS SULFATE [Concomitant]
     Active Substance: FERROUS SULFATE
  11. FUROSEMIDE [Concomitant]
     Active Substance: FUROSEMIDE
     Route: 065
  12. LITHIUM [Concomitant]
     Active Substance: LITHIUM
  13. METFORMIN [Concomitant]
     Active Substance: METFORMIN HYDROCHLORIDE
  14. METHIMAZOLE [Concomitant]
     Active Substance: METHIMAZOLE
  15. NITROGLYCERIN [Concomitant]
     Active Substance: NITROGLYCERIN
  16. OLANZAPINE [Concomitant]
     Active Substance: OLANZAPINE
  17. SENNOSIDES [Concomitant]
     Active Substance: SENNOSIDES
  18. SPIRONOLACTONE [Concomitant]
     Active Substance: SPIRONOLACTONE
  19. VENLAFAXINE HYDROCHLORIDE [Concomitant]
     Active Substance: VENLAFAXINE HYDROCHLORIDE
  20. VITAMIN B12 [Concomitant]
     Active Substance: CYANOCOBALAMIN
  21. VITAMIN D [Concomitant]
     Active Substance: VITAMIN D NOS

REACTIONS (3)
  - Delirium [Recovering/Resolving]
  - Hyperthyroidism [Recovering/Resolving]
  - Thyroiditis [Recovering/Resolving]
